FAERS Safety Report 4582977-7 (Version None)
Quarter: 2005Q1

REPORT INFORMATION
  Report Type: 
  Country: None (occurrence: None)
  Receive Date: 20050127
  Receipt Date: 20040920
  Transmission Date: 20050727
  Serious: No
  Sender: FDA-Public Use
  Company Number: USA040978754

PATIENT
  Age: 7 Year
  Sex: Female

DRUGS (3)
  1. STRATTERA [Suspect]
     Indication: ATTENTION DEFICIT/HYPERACTIVITY DISORDER
     Dosage: 50 MG DAY
  2. SEROQUEL [Concomitant]
  3. RISPERDAL [Concomitant]

REACTIONS (1)
  - MUSCLE TWITCHING [None]
